FAERS Safety Report 5711109-4 (Version None)
Quarter: 2008Q2

REPORT INFORMATION
  Report Type: 
  Country: None (occurrence: None)
  Receive Date: 20080421
  Receipt Date: 20080410
  Transmission Date: 20081010
  Serious: Yes (Hospitalization)
  Sender: FDA-Public Use
  Company Number: BR-JNJFOC-20080402575

PATIENT
  Sex: Male
  Weight: 74.8 kg

DRUGS (7)
  1. REMICADE [Suspect]
     Route: 042
  2. REMICADE [Suspect]
     Route: 042
  3. REMICADE [Suspect]
     Indication: ANKYLOSING SPONDYLITIS
     Route: 042
  4. ENALAPRIL MALEATE [Concomitant]
     Dosage: 12/12 HOURS
     Route: 048
  5. HYDROCHLOROTHIAZIDE [Concomitant]
     Route: 048
  6. PARACETAMOL [Concomitant]
     Route: 048
  7. SODIUM DICLOFENAC [Concomitant]
     Route: 048

REACTIONS (2)
  - PNEUMONIA BACTERIAL [None]
  - PULMONARY TUBERCULOSIS [None]
